FAERS Safety Report 6739980-8 (Version None)
Quarter: 2010Q2

REPORT INFORMATION
  Report Type: 
  Country: None (occurrence: None)
  Receive Date: 20100525
  Receipt Date: 20100514
  Transmission Date: 20101027
  Serious: Yes (Hospitalization)
  Sender: FDA-Public Use
  Company Number: GB-ELI_LILLY_AND_COMPANY-GB201003007950

PATIENT
  Sex: Male

DRUGS (13)
  1. GEMCITABINE HCL [Suspect]
     Indication: LUNG NEOPLASM MALIGNANT
     Dosage: 1767 MG, UNK
     Route: 042
     Dates: start: 20100226
  2. CARBOPLATIN [Suspect]
     Indication: LUNG NEOPLASM MALIGNANT
     Dosage: 275 MG, UNK
     Route: 042
     Dates: start: 20100226
  3. OTHER PHARMA COMPANY INV DRUG [Suspect]
     Indication: LUNG NEOPLASM MALIGNANT
     Dates: start: 20100226
  4. AMLODIPINE [Concomitant]
     Dosage: 10 MG, DAILY (1/D)
     Route: 048
  5. DOXAZOSIN MESYLATE [Concomitant]
     Dosage: 4 MG, DAILY (1/D)
     Route: 048
  6. ACETYLSALICYLIC ACID [Concomitant]
     Dosage: 75 MG, DAILY (1/D)
     Route: 048
  7. BUMETANIDE [Concomitant]
     Dosage: 1 MG, DAILY (1/D)
     Route: 048
  8. LISINOPRIL [Concomitant]
     Dosage: 20 MG, DAILY (1/D)
     Route: 048
  9. FINASTERIDE [Concomitant]
     Dosage: 5 MG, DAILY (1/D)
     Route: 048
  10. LANSOPRAZOLE [Concomitant]
     Dosage: 30 MG, DAILY (1/D)
     Route: 048
  11. IPRATROPIUM [Concomitant]
     Dosage: 2 PUFFS, 4/D
  12. BECLOMETHASONE DIPROPIONATE [Concomitant]
     Dosage: 1 PUFF, 2/D
  13. SALBUTAMOL [Concomitant]
     Dosage: 100 UG, 2 PUFFS 4 TIMES A DAY

REACTIONS (1)
  - LOWER RESPIRATORY TRACT INFECTION [None]
